FAERS Safety Report 16479825 (Version 13)
Quarter: 2020Q2

REPORT INFORMATION
  Report Type: Report from Study
  Country: AU (occurrence: AU)
  Receive Date: 20190626
  Receipt Date: 20200512
  Transmission Date: 20200713
  Serious: Yes (Hospitalization)
  Sender: FDA-Public Use
  Company Number: AU-EISAI MEDICAL RESEARCH-EC-2019-058232

PATIENT
  Age: 58 Year
  Sex: Female
  Weight: 76.9 kg

DRUGS (12)
  1. CALCIUM [Concomitant]
     Active Substance: CALCIUM
     Dates: start: 201905, end: 20190629
  2. ASMOL [Concomitant]
     Dates: start: 201905
  3. LENVATINIB [Suspect]
     Active Substance: LENVATINIB
     Indication: OVARIAN CANCER
     Route: 048
     Dates: start: 20190619, end: 20190620
  4. PEMBROLIZUMAB. [Suspect]
     Active Substance: PEMBROLIZUMAB
     Indication: OVARIAN CANCER
     Route: 041
     Dates: start: 20190619, end: 20190619
  5. LENVATINIB [Suspect]
     Active Substance: LENVATINIB
     Route: 048
     Dates: start: 20190624, end: 20190625
  6. PEMBROLIZUMAB. [Suspect]
     Active Substance: PEMBROLIZUMAB
     Route: 041
     Dates: start: 20190711
  7. MAGNESIUM [Concomitant]
     Active Substance: MAGNESIUM
     Dates: start: 201905, end: 20190821
  8. XARELTO [Concomitant]
     Active Substance: RIVAROXABAN
     Dates: start: 201810, end: 20190621
  9. PANADOL [Concomitant]
     Active Substance: ACETAMINOPHEN
     Dates: start: 201905
  10. SALPRAZ [Concomitant]
     Dates: start: 201601
  11. LENVATINIB [Suspect]
     Active Substance: LENVATINIB
     Route: 048
     Dates: start: 20190711
  12. GLUCOSAMINE [Concomitant]
     Active Substance: GLUCOSAMINE
     Dates: start: 201905

REACTIONS (1)
  - Headache [Recovered/Resolved]

NARRATIVE: CASE EVENT DATE: 20190620
